FAERS Safety Report 9252607 (Version 1)
Quarter: 2013Q1

REPORT INFORMATION
  Report Type: Spontaneous
  Country: US (occurrence: None)
  Receive Date: 20130305
  Receipt Date: 20130305
  Transmission Date: 20140127
  Serious: Yes (Other)
  Sender: FDA-Public Use
  Company Number: 163-201880-12082885

PATIENT
  Age: 64 Year
  Sex: Female
  Weight: 62.6 kg

DRUGS (6)
  1. REVLIMID [Suspect]
     Indication: PLASMA CELL MYELOMA
     Dosage: 25 MG, 21 IN 28 D, PO
     Dates: start: 20120721
  2. AMINOCAP (ALL OTHER THERAPEUTIC PRODUCTS) [Concomitant]
  3. METOPROLOL (METOPROLOL) [Concomitant]
  4. OMEPRAZOLE (OMEPRAZOLE) [Concomitant]
  5. PROCHLORPERIDINE (PROCHLORPERAZINE) [Concomitant]
  6. VORICONAZOLE (VORICONAZOLE) [Concomitant]

REACTIONS (2)
  - Haemoglobin decreased [None]
  - Platelet count decreased [None]
